FAERS Safety Report 17796673 (Version 2)
Quarter: 2020Q2

REPORT INFORMATION
  Report Type: Spontaneous
  Country: JP (occurrence: JP)
  Receive Date: 20200518
  Receipt Date: 20200616
  Transmission Date: 20200714
  Serious: Yes (Other)
  Sender: FDA-Public Use
  Company Number: JP-AMGEN-JPNSP2020078616

PATIENT
  Age: 84 Year
  Sex: Male
  Weight: 68.2 kg

DRUGS (10)
  1. ONEALFA [Concomitant]
     Active Substance: ALFACALCIDOL
     Dosage: 0.25 MICROGRAM, QD
     Route: 048
     Dates: end: 20200408
  2. ONEALFA [Concomitant]
     Active Substance: ALFACALCIDOL
     Dosage: 0.5 MICROGRAM, QD
     Route: 048
     Dates: start: 20190410
  3. FESIN [SACCHARATED IRON OXIDE] [Concomitant]
     Active Substance: IRON SUCROSE
     Dosage: 40 MILLIGRAM, QWK
     Route: 065
     Dates: start: 20190327, end: 20190501
  4. FOSRENOL [Concomitant]
     Active Substance: LANTHANUM CARBONATE
     Dosage: 500 MG, EVERYDAY
     Route: 048
  5. EPOGIN [Concomitant]
     Active Substance: ERYTHROPOIETIN
     Dosage: 6000 DF, QW
     Route: 065
     Dates: start: 20190125, end: 20190508
  6. EPOGIN [Concomitant]
     Active Substance: ERYTHROPOIETIN
     Dosage: 6000 DF, QW
     Route: 065
     Dates: start: 20190619
  7. PARSABIV [Suspect]
     Active Substance: ETELCALCETIDE HYDROCHLORIDE
     Dosage: 7.5 MILLIGRAM, 3 TIMES/WK
     Route: 010
     Dates: start: 20190320
  8. EPOGIN [Concomitant]
     Active Substance: ERYTHROPOIETIN
     Dosage: 4500 DF, QW
     Route: 065
     Dates: start: 20181219, end: 20190123
  9. EPOGIN [Concomitant]
     Active Substance: ERYTHROPOIETIN
     Dosage: 9000 DF, QW
     Route: 065
     Dates: start: 20190508, end: 20190617
  10. PARSABIV [Suspect]
     Active Substance: ETELCALCETIDE HYDROCHLORIDE
     Indication: HYPERPARATHYROIDISM SECONDARY
     Dosage: 5 MILLIGRAM, 3 TIMES/WK
     Route: 010
     Dates: start: 20190306, end: 20190318

REACTIONS (2)
  - Shunt stenosis [Recovered/Resolved]
  - Shunt occlusion [Recovered/Resolved]

NARRATIVE: CASE EVENT DATE: 20200306
